FAERS Safety Report 4618990-0 (Version None)
Quarter: 2005Q1

REPORT INFORMATION
  Report Type: 
  Country: None (occurrence: None)
  Receive Date: 20050325
  Receipt Date: 20050311
  Transmission Date: 20050727
  Serious: Yes (Hospitalization, Other)
  Sender: FDA-Public Use
  Company Number: 200510637EU

PATIENT
  Age: 67 Year
  Sex: Female

DRUGS (6)
  1. ENOXAPARIN SODIUM [Suspect]
     Indication: PHLEBOTHROMBOSIS
     Route: 058
  2. ZANIDIP [Concomitant]
  3. MICARDIS [Concomitant]
  4. BISOPROLOL 5 [Concomitant]
  5. CITALOPRAM HYDROBROMIDE [Concomitant]
  6. BURINEX [Concomitant]

REACTIONS (10)
  - AORTIC VALVE SCLEROSIS [None]
  - C-REACTIVE PROTEIN INCREASED [None]
  - DRUG HYPERSENSITIVITY [None]
  - FIBRIN D DIMER INCREASED [None]
  - HYPERCHOLESTEROLAEMIA [None]
  - HYPERTROPHIC CARDIOMYOPATHY [None]
  - LOW DENSITY LIPOPROTEIN INCREASED [None]
  - MALAISE [None]
  - POST PROCEDURAL COMPLICATION [None]
  - SYNCOPE [None]
